FAERS Safety Report 5114994-2 (Version None)
Quarter: 2006Q3

REPORT INFORMATION
  Report Type: 
  Country: None (occurrence: None)
  Receive Date: 20060922
  Receipt Date: 20060913
  Transmission Date: 20061208
  Serious: Yes (Other)
  Sender: FDA-Public Use
  Company Number: HQWYE454923JAN06

PATIENT
  Age: 56 Year
  Sex: Female
  Weight: 61.29 kg

DRUGS (9)
  1. PREMPRO [Suspect]
     Indication: HORMONE LEVEL ABNORMAL
     Dosage: 0.625MG/2.5MG TABLET DAILY, ORAL
     Route: 048
     Dates: start: 20000101
  2. PREMPRO [Suspect]
  3. PREMPRO [Suspect]
  4. PREMPRO [Suspect]
  5. PREMPRO [Suspect]
  6. VITAMINS [Concomitant]
  7. ZOLOFT [Concomitant]
  8. ATIVAN [Concomitant]
  9. SOMA [Concomitant]

REACTIONS (14)
  - AGITATION [None]
  - ANGER [None]
  - ANXIETY [None]
  - BODY TEMPERATURE INCREASED [None]
  - CRYING [None]
  - DEPRESSED MOOD [None]
  - DRUG INEFFECTIVE [None]
  - HOT FLUSH [None]
  - IRRITABILITY [None]
  - NIGHT SWEATS [None]
  - NIGHTMARE [None]
  - PHARMACEUTICAL PRODUCT COMPLAINT [None]
  - PSYCHIATRIC SYMPTOM [None]
  - SUICIDAL IDEATION [None]
